FAERS Safety Report 7491427-2 (Version None)
Quarter: 2011Q2

REPORT INFORMATION
  Report Type: 
  Country: None (occurrence: None)
  Receive Date: 20110519
  Receipt Date: 20110506
  Transmission Date: 20111010
  Serious: Yes (Other)
  Sender: FDA-Public Use
  Company Number: PHHY2011BE02373

PATIENT
  Age: 44 Year
  Sex: Female

DRUGS (9)
  1. VITAMIN D [Concomitant]
  2. GLUCAGON [Concomitant]
     Indication: TYPE 2 DIABETES MELLITUS
  3. CALCIUM CARBONATE [Concomitant]
  4. ZOLEDRONIC ACID [Suspect]
     Indication: OSTEOPOROSIS
     Dosage: 5 MG, UNK
     Route: 042
     Dates: start: 20101101
  5. PREDNISOLONE [Concomitant]
  6. ZESTRIL [Concomitant]
     Indication: HYPERTENSION
  7. MEDROL [Concomitant]
     Indication: LUPUS NEPHRITIS
  8. STATIN [Concomitant]
     Indication: HYPERCHOLESTEROLAEMIA
  9. TERRA-CORTRIL [Concomitant]

REACTIONS (5)
  - EYE INFLAMMATION [None]
  - SYSTEMIC LUPUS ERYTHEMATOSUS [None]
  - BLEPHARITIS [None]
  - OCULAR HYPERAEMIA [None]
  - EYELID MARGIN CRUSTING [None]
